FAERS Safety Report 4951746-8 (Version None)
Quarter: 2006Q1

REPORT INFORMATION
  Report Type: 
  Country: None (occurrence: None)
  Receive Date: 20060323
  Receipt Date: 20060315
  Transmission Date: 20060701
  Serious: Yes (Death)
  Sender: FDA-Public Use
  Company Number: GB-GLAXOSMITHKLINE-B0415993A

PATIENT
  Age: 52 Year
  Sex: Male

DRUGS (1)
  1. BUPROPION HCL [Suspect]
     Route: 048

REACTIONS (4)
  - COMPLETED SUICIDE [None]
  - HAEMORRHAGE [None]
  - LACERATION [None]
  - OVERDOSE [None]
